FAERS Safety Report 10101488 (Version 1)
Quarter: 2014Q2

REPORT INFORMATION
  Report Type: Spontaneous
  Country: GB (occurrence: None)
  Receive Date: 20140422
  Receipt Date: 20140422
  Transmission Date: 20141212
  Serious: Yes (Life-Threatening, Hospitalization, Other)
  Sender: FDA-Public Use
  Company Number: AUR-APL-2014-04689

PATIENT
  Age: 84 Year
  Sex: Female
  Weight: 63 kg

DRUGS (5)
  1. GLICLAZIDE (GLICLAZIDE) [Suspect]
     Indication: TYPE 2 DIABETES MELLITUS
     Dosage: 160 MG (80 MG, 2 IN 1 D), ORAL
     Route: 048
  2. METFORMIN (METFORMIN) [Suspect]
     Indication: PRODUCT USED FOR UNKNOWN INDICATION
     Dosage: 2 GM (1 GM, 2 IN 1 D)
  3. RAMIPRIL (RAMIPRIL) [Suspect]
     Indication: ANGIOPATHY
     Dosage: 10 MG (5 MG, 2 IN 1 D), ORAL
     Route: 048
     Dates: end: 20140312
  4. TRIMETHOPRIM (TRIMETHOPRIM) [Suspect]
     Indication: URINARY TRACT INFECTION
     Dosage: 400 MG (200 MG, 2 IN 1 D), ORAL
     Route: 048
  5. LEKOVIT CA [Suspect]
     Indication: OSTEOPOROSIS
     Dosage: 1 DOSAGE FORMS (1 DOSAGE FORMS, 1 IN 1 D), ORAL
     Route: 048
     Dates: start: 20140306, end: 20140312

REACTIONS (7)
  - Malaise [None]
  - Nausea [None]
  - Abdominal pain lower [None]
  - Micturition urgency [None]
  - Hyperkalaemia [None]
  - Hypoglycaemia [None]
  - Renal failure acute [None]
